FAERS Safety Report 25205115 (Version 1)
Quarter: 2025Q2

REPORT INFORMATION
  Report Type: Spontaneous
  Country: CN (occurrence: CN)
  Receive Date: 20250416
  Receipt Date: 20250416
  Transmission Date: 20250716
  Serious: Yes (Other)
  Sender: BAXTER
  Company Number: None

PATIENT
  Age: 4 Year
  Sex: Female
  Weight: 13.8 kg

DRUGS (7)
  1. CYCLOPHOSPHAMIDE [Suspect]
     Active Substance: CYCLOPHOSPHAMIDE
     Indication: Malignant mediastinal neoplasm
     Dosage: 0.3 G, QD, INJECTION (WITH GLUCOSE AND SODIUM CHLORIDE)
     Route: 041
     Dates: start: 20241221, end: 20241224
  2. SODIUM CHLORIDE [Suspect]
     Active Substance: SODIUM CHLORIDE
     Route: 041
     Dates: start: 20241221
  3. SODIUM CHLORIDE [Suspect]
     Active Substance: SODIUM CHLORIDE
     Route: 041
     Dates: start: 20241221
  4. SODIUM CHLORIDE [Suspect]
     Active Substance: SODIUM CHLORIDE
     Route: 041
     Dates: start: 20241221
  5. DEXTROSE [Suspect]
     Active Substance: DEXTROSE MONOHYDRATE
     Route: 041
     Dates: start: 20241221
  6. VINDESINE SULFATE [Suspect]
     Active Substance: VINDESINE SULFATE
     Indication: Malignant mediastinal neoplasm
     Dosage: 1.8 MG, QD, WITH SODIUM CHLORIDE 50ML
     Route: 041
     Dates: start: 20241221, end: 20250221
  7. IRINOTECAN HYDROCHLORIDE [Suspect]
     Active Substance: IRINOTECAN HYDROCHLORIDE
     Indication: Malignant mediastinal neoplasm
     Dosage: 70 MG, QD (WITH SODIUM CHLORIDE 100ML)
     Route: 041
     Dates: start: 20241221, end: 20241223

REACTIONS (1)
  - Myelosuppression [Recovering/Resolving]

NARRATIVE: CASE EVENT DATE: 20241224
